FAERS Safety Report 15348481 (Version 1)
Quarter: 2018Q3

REPORT INFORMATION
  Report Type: Report from Study
  Country: CO (occurrence: CO)
  Receive Date: 20180904
  Receipt Date: 20180904
  Transmission Date: 20181010
  Serious: Yes (Death)
  Sender: FDA-Public Use
  Company Number: CO-ASTRAZENECA-2018SF09703

PATIENT
  Sex: Female

DRUGS (1)
  1. OLAPARIB. [Suspect]
     Active Substance: OLAPARIB
     Dosage: 800
     Route: 048
     Dates: start: 20180411

REACTIONS (1)
  - Death [Fatal]

NARRATIVE: CASE EVENT DATE: 20180727
